FAERS Safety Report 24387696 (Version 1)
Quarter: 2024Q4

REPORT INFORMATION
  Report Type: Spontaneous
  Country: US (occurrence: US)
  Receive Date: 20241002
  Receipt Date: 20241002
  Transmission Date: 20250114
  Serious: No
  Sender: QOL
  Company Number: US-QOL Medical, LLC-2162361

PATIENT
  Age: 40 Year
  Sex: Female

DRUGS (2)
  1. SUCRAID [Suspect]
     Active Substance: SACROSIDASE
     Dates: start: 20231115, end: 20231117
  2. ONDANSETRON [Concomitant]
     Active Substance: ONDANSETRON

REACTIONS (4)
  - Urine abnormality [Unknown]
  - Muscle spasms [Unknown]
  - Flatulence [Unknown]
  - Nausea [Unknown]

NARRATIVE: CASE EVENT DATE: 20231115
